FAERS Safety Report 6308640-X (Version None)
Quarter: 2009Q3

REPORT INFORMATION
  Report Type: 
  Country: None (occurrence: None)
  Receive Date: 20090811
  Receipt Date: 20090603
  Transmission Date: 20100115
  Serious: No
  Sender: FDA-Public Use
  Company Number: 1000006636

PATIENT
  Age: 65 Year
  Sex: Male

DRUGS (2)
  1. SAVELLA [Suspect]
     Indication: FIBROMYALGIA
     Dosage: 12.5 MG (12.5 MG, 1 IN 1 D), ORAL
     Route: 048
     Dates: start: 20090526, end: 20090527
  2. COREG [Concomitant]

REACTIONS (2)
  - CHEST PAIN [None]
  - URINARY HESITATION [None]
